FAERS Safety Report 23206372 (Version 8)
Quarter: 2024Q1

REPORT INFORMATION
  Report Type: Spontaneous
  Country: PL (occurrence: PL)
  Receive Date: 20231120
  Receipt Date: 20240110
  Transmission Date: 20240410
  Serious: Yes (Hospitalization)
  Sender: FDA-Public Use
  Company Number: PL-MYLANLABS-2023M1121778

PATIENT
  Age: 64 Year
  Sex: Male

DRUGS (19)
  1. SERTRALINE [Interacting]
     Active Substance: SERTRALINE HYDROCHLORIDE
     Indication: Depression
     Dosage: 50 MILLIGRAM, QD (IN THE MORNING)
     Route: 065
  2. SERTRALINE [Interacting]
     Active Substance: SERTRALINE HYDROCHLORIDE
     Indication: Insomnia
  3. MIRTAZAPINE [Interacting]
     Active Substance: MIRTAZAPINE
     Indication: Depression
     Dosage: 15 MILLIGRAM, QD (AT NIGHT)
     Route: 065
  4. MIRTAZAPINE [Interacting]
     Active Substance: MIRTAZAPINE
     Indication: Insomnia
  5. PREGABALIN [Suspect]
     Active Substance: PREGABALIN
     Indication: Arthralgia
     Dosage: 75 MILLIGRAM, BID
     Route: 065
  6. PREGABALIN [Suspect]
     Active Substance: PREGABALIN
     Indication: Insomnia
  7. ACETAMINOPHEN\TRAMADOL [Interacting]
     Active Substance: ACETAMINOPHEN\TRAMADOL
     Indication: Arthralgia
     Dosage: TRAMADOL 75 MG/ PARACETAMOL 650 MG THRICE DAILY
     Route: 048
  8. DAPAGLIFLOZIN [Interacting]
     Active Substance: DAPAGLIFLOZIN
     Indication: Type 2 diabetes mellitus
     Dosage: 10 MILLIGRAM, QD
     Route: 065
  9. OMEPRAZOLE [Interacting]
     Active Substance: OMEPRAZOLE
     Indication: Gastrooesophageal reflux disease
     Dosage: 40 MILLIGRAM, QD
     Route: 065
  10. OMEPRAZOLE [Interacting]
     Active Substance: OMEPRAZOLE
     Indication: Reflux gastritis
     Dosage: 15 MILLIGRAM
     Route: 065
  11. OMEPRAZOLE [Interacting]
     Active Substance: OMEPRAZOLE
     Indication: Ill-defined disorder
  12. METFORMIN [Interacting]
     Active Substance: METFORMIN HYDROCHLORIDE
     Indication: Type 2 diabetes mellitus
     Dosage: 4000 MILLIGRAM, QD (1000 MILLIGRAM, QID)
     Route: 048
  13. CIPROFLOXACIN [Interacting]
     Active Substance: CIPROFLOXACIN
     Indication: Urinary tract infection
     Dosage: 500 MILLIGRAM, BID (2X500 MG)
     Route: 048
  14. CIPROFLOXACIN [Interacting]
     Active Substance: CIPROFLOXACIN
     Indication: Type 2 diabetes mellitus
  15. METAMIZOLE [Suspect]
     Active Substance: METAMIZOLE
     Indication: Arthralgia
     Dosage: 1000 MILLIGRAM, TID (3X PER DAY)
     Route: 048
  16. DEXKETOPROFEN [Suspect]
     Active Substance: DEXKETOPROFEN
     Indication: Arthralgia
     Dosage: 50 MILLIGRAM, TID (3X PER DAY)
     Route: 048
  17. OXYCODONE [Suspect]
     Active Substance: OXYCODONE
     Indication: Arthralgia
     Dosage: 20 MILLIGRAM, DAILY (20 MG PER DAY (TITRATED DOSE))
     Route: 042
  18. METFORMIN [Concomitant]
     Active Substance: METFORMIN HYDROCHLORIDE
     Indication: Type 2 diabetes mellitus
     Dosage: 1000 MG, PER DAY
     Route: 065
  19. PANTOPRAZOLE [Concomitant]
     Active Substance: PANTOPRAZOLE
     Indication: Reflux gastritis
     Dosage: UNK
     Route: 065

REACTIONS (9)
  - Sedation [Recovered/Resolved]
  - Arthralgia [Recovered/Resolved]
  - Drug interaction [Recovered/Resolved]
  - Drug ineffective [Recovering/Resolving]
  - Medication error [Unknown]
  - Contraindicated product administered [Unknown]
  - Labelled drug-drug interaction issue [Unknown]
  - Urinary tract infection [Unknown]
  - Overdose [Recovered/Resolved]
